FAERS Safety Report 12469346 (Version 1)
Quarter: 2016Q2

REPORT INFORMATION
  Report Type: Spontaneous
  Country: US (occurrence: US)
  Receive Date: 20160615
  Receipt Date: 20160615
  Transmission Date: 20160815
  Serious: No
  Sender: FDA-Public Use
  Company Number: US-WELLSTAT THERAPEUTICS CORPORATION-1053836

PATIENT
  Age: 8 Year
  Sex: Male

DRUGS (4)
  1. DIGESTIVE ENZYME [Concomitant]
     Active Substance: UNSPECIFIED INGREDIENT
  2. URINE TRIPHOSPHATE [Concomitant]
     Route: 065
  3. XURIDEN [Suspect]
     Active Substance: URIDINE TRIACETATE
     Indication: CONGENITAL DISORDER OF GLYCOSYLATION
     Route: 065
     Dates: start: 20160506
  4. LAMICTAL [Concomitant]
     Active Substance: LAMOTRIGINE
     Route: 065

REACTIONS (3)
  - Off label use [Unknown]
  - Agitation [Unknown]
  - Aggression [Unknown]

NARRATIVE: CASE EVENT DATE: 20160506
